FAERS Safety Report 8859676 (Version 1)
Quarter: 2012Q4

REPORT INFORMATION
  Report Type: 
  Country: US (occurrence: US)
  Receive Date: 20121025
  Receipt Date: 20121025
  Transmission Date: 20130627
  Serious: No
  Sender: FDA-Public Use
  Company Number: US-ABBOTT-12P-163-0897606-00

PATIENT
  Sex: Female
  Weight: 81.72 kg

DRUGS (4)
  1. LUPRON DEPOT 3.75 MG [Suspect]
     Indication: ENDOMETRIOSIS
     Dates: start: 201101, end: 20111016
  2. HEPATITIS A VIRUS STRAIN HM175 ANTIGEN (FORMALDEHYDE INACTIVATED)\HEPATITIS B VIRUS SUBTYPE ADW2 HBSAG SURFACE PROTEIN ANTIGEN [Suspect]
     Indication: IMMUNISATION
     Dates: start: 201101, end: 201101
  3. TETANUS TOXOID NOS [Suspect]
     Indication: IMMUNISATION
     Dates: start: 201101, end: 201101
  4. IBUPROFEN [Concomitant]
     Indication: HEADACHE

REACTIONS (3)
  - Pain in extremity [Not Recovered/Not Resolved]
  - Arthralgia [Not Recovered/Not Resolved]
  - Hot flush [Recovered/Resolved]
